FAERS Safety Report 4677410-0 (Version None)
Quarter: 2005Q2

REPORT INFORMATION
  Report Type: 
  Country: None (occurrence: None)
  Receive Date: 20050531
  Receipt Date: 20040827
  Transmission Date: 20051028
  Serious: Yes (Death, Hospitalization)
  Sender: FDA-Public Use
  Company Number: PHNU2004DE03039

PATIENT
  Age: 44 Year
  Sex: Male

DRUGS (2)
  1. DICLOFENAC [Suspect]
     Indication: SCIATICA
     Dosage: UNK, UNK
     Route: 030
     Dates: start: 20040312, end: 20040312
  2. DEXAMETASON [Suspect]
     Indication: SCIATICA
     Dosage: 8 MG, ONCE/SINGLE
     Dates: start: 20040312, end: 20040312

REACTIONS (11)
  - ALPHA HAEMOLYTIC STREPTOCOCCAL INFECTION [None]
  - INFLAMMATION [None]
  - INJECTION SITE INFLAMMATION [None]
  - INJECTION SITE OEDEMA [None]
  - INJECTION SITE REACTION [None]
  - LOCAL SWELLING [None]
  - MULTI-ORGAN FAILURE [None]
  - NECROTISING FASCIITIS [None]
  - PAIN IN EXTREMITY [None]
  - SEPSIS [None]
  - STREPTOCOCCAL SEPSIS [None]
